FAERS Safety Report 6866803-9 (Version None)
Quarter: 2010Q3

REPORT INFORMATION
  Report Type: 
  Country: None (occurrence: None)
  Receive Date: 20100722
  Receipt Date: 20100712
  Transmission Date: 20110219
  Serious: Yes (Death)
  Sender: FDA-Public Use
  Company Number: JP-GENZYME-THYM-1001634

PATIENT
  Sex: Female
  Weight: 61 kg

DRUGS (6)
  1. THYMOGLOBULIN [Suspect]
     Indication: APLASTIC ANAEMIA
     Dosage: 200 MG, QD
     Route: 042
     Dates: start: 20091007, end: 20091011
  2. CYCLOSPORINE [Concomitant]
     Indication: APLASTIC ANAEMIA
     Dosage: UNK
     Dates: start: 20090829, end: 20091201
  3. CARBAZOCHROME SODIUM SULFONATE [Concomitant]
     Indication: HAEMORRHAGE PROPHYLAXIS
     Dosage: UNK
     Dates: start: 20090911, end: 20091203
  4. TRANEXAMIC ACID [Concomitant]
     Indication: HAEMORRHAGE PROPHYLAXIS
     Dosage: UNK
     Dates: start: 20090911, end: 20091203
  5. PLATELETS [Concomitant]
     Indication: APLASTIC ANAEMIA
     Dosage: UNK
     Dates: start: 20091008, end: 20091202
  6. RED BLOOD CELLS [Suspect]
     Indication: APLASTIC ANAEMIA
     Dosage: UNK
     Dates: start: 20091012, end: 20091121

REACTIONS (3)
  - INFECTION [None]
  - LIVER DISORDER [None]
  - PYREXIA [None]
